FAERS Safety Report 8429095 (Version 9)
Quarter: 2014Q4

REPORT INFORMATION
  Report Type: Spontaneous
  Country: US (occurrence: US)
  Receive Date: 20120227
  Receipt Date: 20141215
  Transmission Date: 20150529
  Serious: Yes (Hospitalization, Other)
  Sender: FDA-Public Use
  Company Number: US-009507513-1202USA03519

PATIENT
  Sex: Female
  Weight: 78.93 kg

DRUGS (4)
  1. FOSAMAX [Suspect]
     Active Substance: ALENDRONATE SODIUM
     Indication: OSTEOPOROSIS
     Dosage: 70 MG, QW
     Route: 048
     Dates: end: 200907
  2. PREMPRO [Concomitant]
     Active Substance: ESTROGENS, CONJUGATED\MEDROXYPROGESTERONE ACETATE
     Indication: HORMONE REPLACEMENT THERAPY
     Route: 048
     Dates: start: 1994
  3. CALCIUM (UNSPECIFIED) [Concomitant]
     Active Substance: CALCIUM
     Indication: OSTEOPOROSIS
     Dosage: 1200 MG, QD
     Dates: start: 1982
  4. FOSAMAX [Suspect]
     Active Substance: ALENDRONATE SODIUM
     Dosage: 10 MG, QD
     Route: 048
     Dates: start: 1996

REACTIONS (75)
  - Cardiac failure congestive [Unknown]
  - Hypertension [Unknown]
  - Varicella [Unknown]
  - Thyroid cyst [Unknown]
  - Goitre [Unknown]
  - Heart valve calcification [Unknown]
  - Diarrhoea [Unknown]
  - Medical device complication [Unknown]
  - Hip fracture [Unknown]
  - Intramedullary rod insertion [Unknown]
  - Blood insulin increased [Unknown]
  - Polymyalgia rheumatica [Unknown]
  - Pain in extremity [Unknown]
  - Fracture delayed union [Unknown]
  - Spinal osteoarthritis [Unknown]
  - Dermal cyst [Unknown]
  - Memory impairment [Unknown]
  - Weight increased [Unknown]
  - Weight decreased [Unknown]
  - Chest pain [Unknown]
  - Bursitis [Unknown]
  - Chest discomfort [Unknown]
  - Osteoarthritis [Unknown]
  - Drug hypersensitivity [Unknown]
  - Pain in extremity [Unknown]
  - Haemolytic uraemic syndrome [Unknown]
  - Bladder disorder [Unknown]
  - Lumbar spinal stenosis [Unknown]
  - Spinal fusion surgery [Unknown]
  - Femur fracture [Unknown]
  - Mitral valve prolapse [Unknown]
  - Arthropathy [Unknown]
  - Weight decreased [Unknown]
  - Drug hypersensitivity [Unknown]
  - Pulmonary mass [Unknown]
  - Gastrooesophageal reflux disease [Unknown]
  - Invasive ductal breast carcinoma [Unknown]
  - Lumbar spinal stenosis [Unknown]
  - Asthma [Unknown]
  - Gait disturbance [Unknown]
  - Microvascular coronary artery disease [Unknown]
  - Urinary tract infection [Unknown]
  - Faecaloma [Unknown]
  - Fatigue [Recovering/Resolving]
  - Escherichia infection [Unknown]
  - Postoperative heterotopic calcification [Unknown]
  - Bone marrow disorder [Unknown]
  - Constipation [Unknown]
  - Diabetic neuropathy [Unknown]
  - Pleural effusion [Unknown]
  - Interstitial lung disease [Unknown]
  - Limb injury [Unknown]
  - Pain [Unknown]
  - Hypothyroidism [Unknown]
  - Increased tendency to bruise [Unknown]
  - Blood pressure increased [Unknown]
  - Osteopenia [Unknown]
  - Bone disorder [Unknown]
  - Alopecia [Unknown]
  - Arthropathy [Unknown]
  - Depression [Unknown]
  - Back pain [Not Recovered/Not Resolved]
  - Open reduction of fracture [Unknown]
  - Fracture delayed union [Unknown]
  - Fall [Unknown]
  - Hernia obstructive [Unknown]
  - Fall [Unknown]
  - Femur fracture [Recovering/Resolving]
  - Hyperlipidaemia [Unknown]
  - Glucose tolerance impaired [Unknown]
  - Haemorrhage [Unknown]
  - Palpitations [Unknown]
  - Rib fracture [Unknown]
  - Osteosclerosis [Unknown]
  - Abdominal discomfort [Unknown]

NARRATIVE: CASE EVENT DATE: 19960226
